FAERS Safety Report 24232363 (Version 1)
Quarter: 2024Q3

REPORT INFORMATION
  Report Type: Spontaneous
  Country: CA (occurrence: CA)
  Receive Date: 20240821
  Receipt Date: 20240821
  Transmission Date: 20241016
  Serious: Yes (Death, Life-Threatening)
  Sender: PFIZER
  Company Number: CA-PFIZER INC-202400239993

PATIENT
  Age: 78 Year
  Sex: Male
  Weight: 80 kg

DRUGS (15)
  1. METHOTREXATE SODIUM [Suspect]
     Active Substance: METHOTREXATE SODIUM
     Indication: Psoriasis
     Dosage: 25 MG
     Route: 048
  2. ASPIRIN [Concomitant]
     Active Substance: ASPIRIN
     Route: 065
  3. BUDESONIDE\FORMOTEROL [Concomitant]
     Active Substance: BUDESONIDE\FORMOTEROL
     Route: 065
  4. DILTIAZEM [Concomitant]
     Active Substance: DILTIAZEM
  5. FOLIC ACID [Concomitant]
     Active Substance: FOLIC ACID
  6. JARDIANCE [Concomitant]
     Active Substance: EMPAGLIFLOZIN
  7. LORAZEPAM [Concomitant]
     Active Substance: LORAZEPAM
     Route: 065
  8. METFORMIN [Concomitant]
     Active Substance: METFORMIN HYDROCHLORIDE
  9. PANTOPRAZOLE [Concomitant]
     Active Substance: PANTOPRAZOLE
  10. PERINDOPRIL [Concomitant]
     Active Substance: PERINDOPRIL
  11. PREGABALIN [Concomitant]
     Active Substance: PREGABALIN
  12. ROSUVASTATIN [Concomitant]
     Active Substance: ROSUVASTATIN\ROSUVASTATIN CALCIUM
     Route: 058
  13. ALBUTEROL [Concomitant]
     Active Substance: ALBUTEROL
  14. TIOTROPIUM BROMIDE [Concomitant]
     Active Substance: TIOTROPIUM BROMIDE
     Route: 065
  15. TRESIBA [Concomitant]
     Active Substance: INSULIN DEGLUDEC

REACTIONS (3)
  - Acute kidney injury [Fatal]
  - Bone marrow failure [Fatal]
  - Infection [Fatal]
